FAERS Safety Report 5978530-0 (Version None)
Quarter: 2008Q4

REPORT INFORMATION
  Report Type: 
  Country: None (occurrence: None)
  Receive Date: 20081204
  Receipt Date: 20080324
  Transmission Date: 20090506
  Serious: No
  Sender: FDA-Public Use
  Company Number: US-BAYER-200811320BCC

PATIENT
  Age: 20 Year
  Sex: Female
  Weight: 77 kg

DRUGS (3)
  1. ALEVE [Suspect]
     Indication: HEADACHE
     Dosage: TOTAL DAILY DOSE: 3300 MG  UNIT DOSE: 220 MG
     Route: 048
     Dates: start: 20080324
  2. ZOLOFT [Concomitant]
  3. YAZ [Concomitant]

REACTIONS (1)
  - ABDOMINAL DISCOMFORT [None]
